FAERS Safety Report 4523678-0 (Version None)
Quarter: 2004Q4

REPORT INFORMATION
  Report Type: 
  Country: None (occurrence: None)
  Receive Date: 20041210
  Receipt Date: 20041129
  Transmission Date: 20050328
  Serious: Yes (Hospitalization)
  Sender: FDA-Public Use
  Company Number: FR-GLAXOSMITHKLINE-A0536390A

PATIENT
  Age: 60 Year
  Sex: Male

DRUGS (11)
  1. NAVELBINE [Suspect]
     Indication: LARYNGEAL CANCER
     Dosage: 40MG CYCLIC
     Route: 042
     Dates: start: 20040420, end: 20040528
  2. CARBOPLATIN [Suspect]
     Indication: LARYNGEAL CANCER
     Dosage: 400MG CYCLIC
     Route: 042
     Dates: start: 20040420, end: 20040528
  3. TAXOTERE [Suspect]
     Indication: LARYNGEAL CANCER
     Dosage: 120MG SINGLE DOSE
     Route: 042
     Dates: start: 20040617
  4. LAROXYL [Concomitant]
  5. IMOVANE [Concomitant]
  6. SOLUPRED [Concomitant]
  7. OMEPRAZOLE [Concomitant]
  8. ASASANTIN [Concomitant]
  9. SKENAN [Concomitant]
  10. FORLAX [Concomitant]
  11. ALDALIX [Concomitant]

REACTIONS (3)
  - BRONCHIAL INFECTION [None]
  - INTERSTITIAL LUNG DISEASE [None]
  - PYREXIA [None]
